FAERS Safety Report 13586676 (Version 2)
Quarter: 2017Q2

REPORT INFORMATION
  Report Type: Spontaneous
  Country: US (occurrence: US)
  Receive Date: 20170526
  Receipt Date: 20170614
  Transmission Date: 20170830
  Serious: No
  Sender: FDA-Public Use
  Company Number: US-PFIZER INC-2017229268

PATIENT
  Age: 57 Year
  Sex: Male
  Weight: 95 kg

DRUGS (16)
  1. IBUPROFEN. [Suspect]
     Active Substance: IBUPROFEN
     Indication: ARTHRITIS
     Dosage: 800 MG, UNK
  2. LYRICA [Concomitant]
     Active Substance: PREGABALIN
     Indication: FIBROMYALGIA
     Dosage: 75 MG, 1X/DAY
     Dates: start: 2016, end: 2016
  3. GABAPENTIN. [Concomitant]
     Active Substance: GABAPENTIN
     Indication: FIBROMYALGIA
     Dosage: 600 MG, 4X/DAY
     Route: 048
     Dates: start: 2009
  4. EFFEXOR [Concomitant]
     Active Substance: VENLAFAXINE HYDROCHLORIDE
     Indication: MYALGIA
  5. EFFEXOR [Concomitant]
     Active Substance: VENLAFAXINE HYDROCHLORIDE
     Indication: SPINAL DISORDER
  6. AMITRIPTYLINE [Concomitant]
     Active Substance: AMITRIPTYLINE
     Indication: ANXIETY
  7. EFFEXOR [Concomitant]
     Active Substance: VENLAFAXINE HYDROCHLORIDE
     Indication: SKIN BURNING SENSATION
  8. IBUPROFEN. [Suspect]
     Active Substance: IBUPROFEN
     Dosage: 600 MG, 3X/DAY
  9. AMITRIPTYLINE [Concomitant]
     Active Substance: AMITRIPTYLINE
     Indication: FIBROMYALGIA
     Dosage: UNK
     Dates: start: 2009, end: 2016
  10. TIZANIDINE HYDROCHLORIDE. [Concomitant]
     Active Substance: TIZANIDINE HYDROCHLORIDE
     Indication: MUSCLE SPASMS
     Dosage: 6 MG, 3X/DAY
  11. AMITRIPTYLINE [Concomitant]
     Active Substance: AMITRIPTYLINE
     Indication: SPINAL DISORDER
  12. EFFEXOR [Concomitant]
     Active Substance: VENLAFAXINE HYDROCHLORIDE
     Indication: ANXIETY
     Dosage: UNK
     Dates: start: 2009, end: 2016
  13. DIAZEPAM. [Concomitant]
     Active Substance: DIAZEPAM
     Indication: ANXIETY
     Dosage: 10 MG, 3X/DAY
  14. DIAZEPAM. [Concomitant]
     Active Substance: DIAZEPAM
     Indication: MUSCLE TIGHTNESS
  15. TRAMADOL. [Concomitant]
     Active Substance: TRAMADOL
     Indication: PAIN
     Dosage: 50 MG, 4X/DAY
     Dates: start: 2014
  16. SIMVASTATIN. [Concomitant]
     Active Substance: SIMVASTATIN
     Indication: BLOOD CHOLESTEROL ABNORMAL
     Dosage: 40 MG, 1X/DAY

REACTIONS (2)
  - Bowel movement irregularity [Unknown]
  - Dysuria [Unknown]
